FAERS Safety Report 17761925 (Version 2)
Quarter: 2020Q2

REPORT INFORMATION
  Report Type: Spontaneous
  Country: GB (occurrence: GB)
  Receive Date: 20200508
  Receipt Date: 20200525
  Transmission Date: 20200714
  Serious: Yes (Life-Threatening, Hospitalization, Other)
  Sender: FDA-Public Use
  Company Number: GB-BRISTOL-MYERS SQUIBB COMPANY-BMS-2020-036595

PATIENT
  Sex: Female

DRUGS (1)
  1. APIXABAN [Suspect]
     Active Substance: APIXABAN
     Indication: CEREBROVASCULAR ACCIDENT PROPHYLAXIS
     Dosage: UNAVAILABLE
     Route: 065
     Dates: start: 201908

REACTIONS (6)
  - Pneumonia [Unknown]
  - Anaemia [Unknown]
  - Nausea [Unknown]
  - Vitamin B12 deficiency [Unknown]
  - Dyspnoea exertional [Unknown]
  - Epistaxis [Unknown]
